FAERS Safety Report 5830885-3 (Version None)
Quarter: 2008Q3

REPORT INFORMATION
  Report Type: 
  Country: None (occurrence: None)
  Receive Date: 20080801
  Receipt Date: 20080204
  Transmission Date: 20090109
  Serious: Yes (Other)
  Sender: FDA-Public Use
  Company Number: US-BRISTOL-MYERS SQUIBB COMPANY-14043988

PATIENT
  Age: 55 Year
  Sex: Male

DRUGS (3)
  1. GLUCOPHAGE [Suspect]
  2. WARFARIN SODIUM [Suspect]
     Route: 048
     Dates: start: 20070101, end: 20070101
  3. PLAVIX [Suspect]
     Route: 048
     Dates: start: 20070101, end: 20070101

REACTIONS (3)
  - GASTROINTESTINAL HAEMORRHAGE [None]
  - MALAISE [None]
  - MELAENA [None]
